FAERS Safety Report 20602114 (Version 2)
Quarter: 2022Q2

REPORT INFORMATION
  Report Type: Report from Study
  Country: US (occurrence: US)
  Receive Date: 20220316
  Receipt Date: 20220402
  Transmission Date: 20220721
  Serious: No
  Sender: FDA-Public Use
  Company Number: US-NOVARTISTESTPH-NVSC2022US060642

PATIENT
  Age: 43 Year
  Sex: Male

DRUGS (2)
  1. DEXAMETHASONE SODIUM PHOSPHATE [Suspect]
     Active Substance: DEXAMETHASONE SODIUM PHOSPHATE
     Indication: Product used for unknown indication
     Route: 065
  2. PREDNISOLONE [Suspect]
     Active Substance: PREDNISOLONE
     Indication: Product used for unknown indication
     Dosage: UNK
     Route: 065

REACTIONS (15)
  - Platelet count abnormal [Unknown]
  - Cognitive disorder [Unknown]
  - Decreased activity [Unknown]
  - Asthenia [Unknown]
  - Fatigue [Unknown]
  - Emotional disorder [Unknown]
  - Stress [Unknown]
  - Affective disorder [Unknown]
  - Feeling abnormal [Unknown]
  - Purpura [Unknown]
  - Decreased appetite [Unknown]
  - Abdominal pain upper [Unknown]
  - Arthralgia [Unknown]
  - Anxiety [Unknown]
  - Drug ineffective [Unknown]
